FAERS Safety Report 21406030 (Version 1)
Quarter: 2022Q4

REPORT INFORMATION
  Report Type: Spontaneous
  Country: CN (occurrence: CN)
  Receive Date: 20221004
  Receipt Date: 20221004
  Transmission Date: 20230113
  Serious: Yes (Hospitalization, Other)
  Sender: FDA-Public Use
  Company Number: None

PATIENT
  Age: 55 Year
  Sex: Female

DRUGS (6)
  1. CYCLOPHOSPHAMIDE [Suspect]
     Active Substance: CYCLOPHOSPHAMIDE
     Indication: Breast cancer female
     Dosage: 1 G, QD DILUTED WITH 500 ML OF 0.9% SODIUM CHLORIDE INJECTION
     Route: 041
     Dates: start: 20220908, end: 20220908
  2. SODIUM CHLORIDE [Suspect]
     Active Substance: SODIUM CHLORIDE
     Indication: Vehicle solution use
     Dosage: 500 ML, QD DILUTED IN 1 G OF CYCLOPHOSPHAMIDE INJECTION
     Route: 041
     Dates: start: 20220908, end: 20220908
  3. SODIUM CHLORIDE [Suspect]
     Active Substance: SODIUM CHLORIDE
     Dosage: 100 ML, QD DILUTED IN 130 MG OF EPIRUBICIN HYDROCHLORIDE INJECTION
     Route: 041
     Dates: start: 20220908, end: 20220908
  4. SODIUM CHLORIDE [Suspect]
     Active Substance: SODIUM CHLORIDE
     Dosage: 100 ML, QD, DILUTED IN 400 MG OF PACLITAXEL (ALBUMIN BOUND) INJECTION
     Route: 041
     Dates: start: 20220908, end: 20220908
  5. EPIRUBICIN HYDROCHLORIDE [Suspect]
     Active Substance: EPIRUBICIN HYDROCHLORIDE
     Indication: Breast cancer female
     Dosage: 130 MG ONCE DAILY, DILUTED WITH 100 ML OF 0.9%  SODIUM CHLORIDE INJECTION
     Route: 041
     Dates: start: 20220908, end: 20220908
  6. PACLITAXEL [Suspect]
     Active Substance: PACLITAXEL
     Indication: Breast cancer female
     Dosage: 400 MG ONCE DAILY DILUTED WITH 100 ML OF 0.9% SODIUM CHLORIDE INJECTION
     Route: 041
     Dates: start: 20220908, end: 20220908

REACTIONS (3)
  - Myelosuppression [Recovered/Resolved]
  - White blood cell count decreased [Recovered/Resolved]
  - Neutrophil count decreased [Recovered/Resolved]

NARRATIVE: CASE EVENT DATE: 20220918
